FAERS Safety Report 10563818 (Version 5)
Quarter: 2015Q1

REPORT INFORMATION
  Report Type: Report from Study
  Country: BR (occurrence: BR)
  Receive Date: 20141104
  Receipt Date: 20150107
  Transmission Date: 20150720
  Serious: Yes (Other)
  Sender: FDA-Public Use
  Company Number: PHHY2014BR143058

PATIENT
  Sex: Male
  Weight: 59 kg

DRUGS (8)
  1. PREDNISONE. [Concomitant]
     Active Substance: PREDNISONE
     Indication: PRODUCT USED FOR UNKNOWN INDICATION
     Dosage: 1 DF (5 MG), QD
     Route: 048
     Dates: start: 2013
  2. CABERGOLINE. [Concomitant]
     Active Substance: CABERGOLINE
     Dosage: 1 DF, QD
     Route: 048
  3. SANDOSTATIN LAR DEPOT [Suspect]
     Active Substance: OCTREOTIDE ACETATE
     Indication: PITUITARY TUMOUR
     Dosage: 20 MG, QMO (EVERY 28 DAYS)
     Route: 030
     Dates: start: 2007
  4. SANDOSTATIN LAR DEPOT [Suspect]
     Active Substance: OCTREOTIDE ACETATE
     Dosage: 30 MG (ONE VIAL), QMO (EVERY 28 DAYS)
     Route: 030
     Dates: start: 2010
  5. DOSTINEX [Concomitant]
     Active Substance: CABERGOLINE
     Indication: INSULIN-LIKE GROWTH FACTOR INCREASED
     Dosage: 1 DF, QD
     Route: 065
     Dates: start: 2010
  6. DOSTINEX [Concomitant]
     Active Substance: CABERGOLINE
     Indication: BLOOD GROWTH HORMONE INCREASED
  7. CABERGOLINE. [Concomitant]
     Active Substance: CABERGOLINE
     Indication: BRAIN NEOPLASM
     Dosage: 5 DF, QW
     Route: 048
  8. DORFLEX [Concomitant]
     Active Substance: CAFFEINE\DIPYRONE\ORPHENADRINE
     Indication: PRODUCT USED FOR UNKNOWN INDICATION
     Dosage: 1 DF (5 MG), QD
     Route: 048

REACTIONS (2)
  - Drug ineffective [Not Recovered/Not Resolved]
  - Gastrointestinal carcinoma [Recovering/Resolving]
